FAERS Safety Report 9845547 (Version 1)
Quarter: 2014Q1

REPORT INFORMATION
  Report Type: Spontaneous
  Country: GB (occurrence: GB)
  Receive Date: 20140127
  Receipt Date: 20140127
  Transmission Date: 20141002
  Serious: Yes (Other)
  Sender: FDA-Public Use
  Company Number: GB-JNJFOC-20140107007

PATIENT
  Age: 66 Year
  Sex: Female
  Weight: 47.62 kg

DRUGS (1)
  1. ACETAMINOPHEN/CODEINE [Suspect]
     Indication: ARTHRITIS
     Route: 048
     Dates: start: 20131122

REACTIONS (4)
  - Anxiety [Recovered/Resolved]
  - Insomnia [Recovered/Resolved]
  - Flatulence [Recovered/Resolved]
  - Dyspepsia [Recovered/Resolved]
